FAERS Safety Report 8381148-6 (Version None)
Quarter: 2012Q2

REPORT INFORMATION
  Report Type: 
  Country: None (occurrence: None)
  Receive Date: 20120523
  Receipt Date: 20120518
  Transmission Date: 20120825
  Serious: Yes (Other)
  Sender: FDA-Public Use
  Company Number: PHHY2012BR043342

PATIENT
  Sex: Female

DRUGS (4)
  1. DIOVAN [Suspect]
     Indication: HYPERTENSION
     Dosage: 1 TABLET (160 MG) DAILY
  2. SYNTHROID [Concomitant]
     Indication: THYROID DISORDER
     Dosage: 1 TABLET (75 MG) DAILY
  3. GLICLAZIDE [Concomitant]
     Indication: DIABETES MELLITUS
     Dosage: 1 TABLET (30 MG) DAILY
  4. INSULIN [Concomitant]
     Indication: DIABETES MELLITUS
     Dosage: 10 IU AT MORNING AND 10 IU AT NIGHT

REACTIONS (2)
  - THYROID DISORDER [None]
  - CATARACT [None]
